FAERS Safety Report 4425449-2 (Version None)
Quarter: 2004Q3

REPORT INFORMATION
  Report Type: 
  Country: None (occurrence: None)
  Receive Date: 20040813
  Receipt Date: 20040803
  Transmission Date: 20050211
  Serious: Yes (Hospitalization)
  Sender: FDA-Public Use
  Company Number: RO-ROCHE-376398

PATIENT
  Age: 60 Year
  Sex: Female
  Weight: 61 kg

DRUGS (3)
  1. PEGASYS [Suspect]
     Dosage: FORMULATION: PREFILLED SYRINGE (PFS).
     Route: 058
     Dates: start: 20040705, end: 20040721
  2. COPEGUS [Suspect]
     Route: 048
     Dates: start: 20040705, end: 20040719
  3. COPEGUS [Suspect]
     Route: 048
     Dates: start: 20040720, end: 20040728

REACTIONS (4)
  - HAEMATEMESIS [None]
  - HAEMATOMA [None]
  - PANCYTOPENIA [None]
  - PYREXIA [None]
